FAERS Safety Report 15462592 (Version 1)
Quarter: 2018Q4

REPORT INFORMATION
  Report Type: Spontaneous
  Country: US (occurrence: US)
  Receive Date: 20181001
  Receipt Date: 20181001
  Transmission Date: 20190204
  Serious: No
  Sender: FDA-Public Use
  Company Number: None

PATIENT
  Age: 40 Year
  Sex: Female

DRUGS (1)
  1. TALTZ [Suspect]
     Active Substance: IXEKIZUMAB
     Indication: PSORIASIS
     Dosage: INJECT 80MG (1 PEN) SUBCUTANEOUSLY EVERY 2 WEEKS   AT WEEKS  2-12 AS DIRECTED?
     Route: 058
     Dates: start: 201808

REACTIONS (4)
  - Nasopharyngitis [None]
  - Pruritus [None]
  - Pain [None]
  - Headache [None]
